FAERS Safety Report 7356275-2 (Version None)
Quarter: 2011Q1

REPORT INFORMATION
  Report Type: 
  Country: None (occurrence: None)
  Receive Date: 20110316
  Receipt Date: 20110309
  Transmission Date: 20110831
  Serious: Yes (Other)
  Sender: FDA-Public Use
  Company Number: GB-PFIZER INC-2011052728

PATIENT
  Age: 38 Year
  Sex: Female

DRUGS (2)
  1. AZITHROMYCIN [Suspect]
     Indication: TOOTH DISORDER
     Dosage: UNK
     Dates: start: 20100601, end: 20100701
  2. MIRTAZAPINE [Concomitant]
     Dosage: UNK
     Dates: start: 20100701

REACTIONS (8)
  - INSOMNIA [None]
  - GASTRITIS [None]
  - DECREASED APPETITE [None]
  - DEPRESSION [None]
  - WEIGHT DECREASED [None]
  - NAUSEA [None]
  - CRYING [None]
  - DIARRHOEA [None]
